FAERS Safety Report 10364843 (Version 2)
Quarter: 2014Q3

REPORT INFORMATION
  Report Type: Other
  Country: IT (occurrence: IT)
  Receive Date: 20140806
  Receipt Date: 20140806
  Transmission Date: 20150326
  Serious: Yes (Hospitalization)
  Sender: FDA-Public Use
  Company Number: IT-MYLAN-2014S1011000

PATIENT

DRUGS (3)
  1. ONDANSETRON KABI [Concomitant]
     Indication: PREMEDICATION
     Dosage: 8 MG,UNK
     Route: 042
     Dates: start: 20140410, end: 20140424
  2. PACLITAXEL. [Suspect]
     Active Substance: PACLITAXEL
     Indication: BREAST CANCER
     Dosage: 146 MG,QW
     Route: 042
     Dates: start: 20140410, end: 20140424
  3. SOLU-CORTEF [Concomitant]
     Active Substance: HYDROCORTISONE SODIUM SUCCINATE
     Indication: PREMEDICATION
     Dosage: 500 MG,UNK
     Route: 042
     Dates: start: 20140410, end: 20140424

REACTIONS (2)
  - Skin ulcer [Recovering/Resolving]
  - Rash maculo-papular [Recovering/Resolving]

NARRATIVE: CASE EVENT DATE: 20140424
